FAERS Safety Report 23941855 (Version 1)
Quarter: 2024Q2

REPORT INFORMATION
  Report Type: Spontaneous
  Country: US (occurrence: US)
  Receive Date: 20240605
  Receipt Date: 20240605
  Transmission Date: 20240715
  Serious: Yes (Hospitalization)
  Sender: FDA-Public Use
  Company Number: US-OPKO PHARMACEUTICALS, LLC.-2024OPK00114

PATIENT
  Age: 63 Year
  Sex: Female

DRUGS (3)
  1. RAYALDEE [Suspect]
     Active Substance: CALCIFEDIOL
     Indication: Vitamin D deficiency
     Dosage: 60 MCG, QD
     Route: 048
     Dates: start: 20210405
  2. RAYALDEE [Suspect]
     Active Substance: CALCIFEDIOL
     Indication: Chronic kidney disease
  3. RAYALDEE [Suspect]
     Active Substance: CALCIFEDIOL
     Indication: Hyperparathyroidism secondary

REACTIONS (2)
  - Hospitalisation [Unknown]
  - Off label use [None]

NARRATIVE: CASE EVENT DATE: 20240405
